FAERS Safety Report 6239821-1 (Version None)
Quarter: 2009Q2

REPORT INFORMATION
  Report Type: 
  Country: None (occurrence: None)
  Receive Date: 20090623
  Receipt Date: 20090610
  Transmission Date: 20091009
  Serious: Yes (Death, Hospitalization)
  Sender: FDA-Public Use
  Company Number: AU-RANBAXY-2009RR-24641

PATIENT
  Age: 61 Year
  Sex: Female

DRUGS (5)
  1. METFORMIN HCL [Suspect]
  2. FUROSEMIDE [Concomitant]
  3. GLICLAZIDE [Concomitant]
  4. QUINAPRIL [Concomitant]
  5. CANDESARTAN/HYDROCHLOROTHIAZIDE [Concomitant]

REACTIONS (4)
  - DEHYDRATION [None]
  - LACTIC ACIDOSIS [None]
  - RENAL FAILURE ACUTE [None]
  - SHOCK [None]
